FAERS Safety Report 9306191 (Version 2)
Quarter: 2013Q2

REPORT INFORMATION
  Report Type: Spontaneous
  Country: US (occurrence: US)
  Receive Date: 20130523
  Receipt Date: 20130531
  Transmission Date: 20140414
  Serious: Yes (Hospitalization)
  Sender: FDA-Public Use
  Company Number: US-GILEAD-2013-0073704

PATIENT
  Sex: Female

DRUGS (6)
  1. LETAIRIS [Suspect]
     Indication: PULMONARY HYPERTENSION
     Dosage: 10 MG, QD
     Route: 048
     Dates: start: 20081202
  2. LETAIRIS [Suspect]
     Indication: EXPOSURE TO TOXIC AGENT
  3. LETAIRIS [Suspect]
     Indication: MIXED CONNECTIVE TISSUE DISEASE
  4. FLOLAN [Concomitant]
  5. COUMADIN                           /00014802/ [Concomitant]
  6. REVATIO [Concomitant]

REACTIONS (2)
  - Fluid overload [Unknown]
  - Right ventricular failure [Unknown]
